FAERS Safety Report 5476581-6 (Version None)
Quarter: 2007Q4

REPORT INFORMATION
  Report Type: 
  Country: None (occurrence: None)
  Receive Date: 20071004
  Receipt Date: 20070926
  Transmission Date: 20080405
  Serious: Yes (Other)
  Sender: FDA-Public Use
  Company Number: PHBS2006JP15732

PATIENT
  Age: 54 Year
  Sex: Male
  Weight: 55 kg

DRUGS (21)
  1. SANDIMMUNE [Concomitant]
     Indication: BONE MARROW TRANSPLANT
     Dosage: 3 MG/KG/D
     Route: 041
     Dates: start: 20050525, end: 20050706
  2. NEORAL [Suspect]
     Indication: BONE MARROW TRANSPLANT
     Dosage: 300 MG/D
     Route: 048
     Dates: start: 20050706, end: 20050719
  3. NEORAL [Suspect]
     Dosage: 100 MG/D
     Route: 048
     Dates: start: 20050720, end: 20050829
  4. NEORAL [Suspect]
     Dosage: 150 MG/D
     Route: 048
     Dates: start: 20050830, end: 20050905
  5. NEORAL [Suspect]
     Dosage: 100 MG/D
     Route: 048
     Dates: start: 20050906, end: 20050919
  6. NEORAL [Suspect]
     Dosage: 80 MG/D
     Route: 048
     Dates: start: 20050920, end: 20050926
  7. NEORAL [Suspect]
     Dosage: 70 MG/D
     Route: 048
     Dates: start: 20050927, end: 20051003
  8. NEORAL [Suspect]
     Dosage: 60 MG/D
     Route: 048
     Dates: start: 20051004, end: 20051010
  9. NEORAL [Suspect]
     Dosage: 50 MG/D
     Route: 048
     Dates: start: 20051011, end: 20051107
  10. NEORAL [Suspect]
     Dosage: 10 MG/D
     Route: 048
     Dates: start: 20051108, end: 20051114
  11. NEORAL [Suspect]
     Dosage: 20 MG/D
     Route: 048
     Dates: start: 20051115, end: 20051121
  12. NEORAL [Suspect]
     Dosage: 40 MG/D
     Route: 048
     Dates: start: 20051122, end: 20051219
  13. NEORAL [Suspect]
     Dosage: 140 MG/D
     Route: 048
     Dates: start: 20051220, end: 20060118
  14. NEORAL [Suspect]
     Dosage: 120 MG/D
     Route: 048
     Dates: start: 20060119, end: 20060220
  15. NEORAL [Suspect]
     Dosage: 80 MG/D
     Route: 048
     Dates: start: 20060221, end: 20060327
  16. NEORAL [Suspect]
     Dosage: 50 MG/D
     Route: 048
     Dates: start: 20060328, end: 20060410
  17. NEORAL [Suspect]
     Dosage: 40 MG/D
     Route: 048
     Dates: start: 20060411, end: 20060522
  18. NEORAL [Suspect]
     Dosage: 30 MG/D
     Route: 048
     Dates: start: 20060523, end: 20060612
  19. NEORAL [Suspect]
     Dosage: 10 MG/D
     Route: 048
     Dates: start: 20060613, end: 20060724
  20. NEORAL [Suspect]
     Dosage: 40 MG/D
     Route: 048
     Dates: start: 20060725, end: 20060821
  21. NEORAL [Suspect]
     Dosage: 75 - 50 MG/D
     Route: 048
     Dates: start: 20060822

REACTIONS (9)
  - BLOOD CREATININE INCREASED [None]
  - GLOMERULONEPHRITIS MEMBRANOUS [None]
  - GRAFT VERSUS HOST DISEASE [None]
  - HYPOAESTHESIA ORAL [None]
  - NEPHROPATHY TOXIC [None]
  - NEPHROTIC SYNDROME [None]
  - PROTEIN URINE PRESENT [None]
  - RASH [None]
  - RENAL DISORDER [None]
